FAERS Safety Report 13121469 (Version 1)
Quarter: 2017Q1

REPORT INFORMATION
  Report Type: Spontaneous
  Country: US (occurrence: US)
  Receive Date: 20170114
  Receipt Date: 20170114
  Transmission Date: 20170428
  Serious: Yes (Hospitalization)
  Sender: FDA-Public Use
  Company Number: None

PATIENT
  Age: 33 Year
  Sex: Female
  Weight: 95.85 kg

DRUGS (3)
  1. TYLENOL [Concomitant]
     Active Substance: ACETAMINOPHEN
  2. SAXENDA [Suspect]
     Active Substance: LIRAGLUTIDE
     Indication: WEIGHT INCREASED
     Dosage: ?          QUANTITY:6 PENS/INJECTION;?
     Route: 058
     Dates: start: 20170105, end: 20170110
  3. VITAMIN D [Concomitant]
     Active Substance: CHOLECALCIFEROL

REACTIONS (6)
  - Pancreatic disorder [None]
  - Poor quality sleep [None]
  - Back pain [None]
  - Gallbladder disorder [None]
  - Palpitations [None]
  - Abdominal pain upper [None]

NARRATIVE: CASE EVENT DATE: 20170111
